FAERS Safety Report 7825789-0 (Version None)
Quarter: 2011Q4

REPORT INFORMATION
  Report Type: 
  Country: None (occurrence: None)
  Receive Date: 20111019
  Receipt Date: 20111018
  Transmission Date: 20120403
  Serious: Yes (Hospitalization)
  Sender: FDA-Public Use
  Company Number: IT-BAYER-2011-100541

PATIENT
  Age: 69 Year
  Sex: Male

DRUGS (3)
  1. ALIFLUS [Concomitant]
     Indication: CHRONIC OBSTRUCTIVE PULMONARY DISEASE
     Dosage: DAILY DOSE 1100 ?G
     Route: 055
     Dates: start: 20070901, end: 20110915
  2. CIPROFLAXACIN [Suspect]
     Indication: CHRONIC OBSTRUCTIVE PULMONARY DISEASE
     Dosage: DAILY DOSE 500 MG
     Route: 048
     Dates: start: 20110910, end: 20110916
  3. CORTICOSTEROIDS [Concomitant]
     Dosage: UNK

REACTIONS (3)
  - BRONCHOSTENOSIS [None]
  - CHOKING SENSATION [None]
  - HYPERTENSION [None]
